FAERS Safety Report 8668876 (Version 2)
Quarter: 2012Q4

REPORT INFORMATION
  Report Type: 
  Country: US (occurrence: US)
  Receive Date: 20120717
  Receipt Date: 20120829
  Transmission Date: 20130627
  Serious: Yes (Other)
  Sender: FDA-Public Use
  Company Number: PHEH2012US007773

PATIENT
  Sex: Female

DRUGS (4)
  1. VIVELLE DOT [Suspect]
     Dosage: 0.05 mg twice weekly
     Route: 062
     Dates: start: 20111024, end: 20120701
  2. SYNTHROID [Concomitant]
     Dosage: UNK UKN, UNK
  3. HCT [Concomitant]
     Dosage: UNK UKN, UNK
  4. ATENOLOL [Concomitant]
     Dosage: UNK UKN, UNK

REACTIONS (6)
  - Condition aggravated [Not Recovered/Not Resolved]
  - Medication error [Unknown]
  - Anxiety [Not Recovered/Not Resolved]
  - Depression [Unknown]
  - Headache [Not Recovered/Not Resolved]
  - Scoliosis [None]
